FAERS Safety Report 17809182 (Version 2)
Quarter: 2022Q3

REPORT INFORMATION
  Report Type: Spontaneous
  Country: ES (occurrence: ES)
  Receive Date: 20200520
  Receipt Date: 20220706
  Transmission Date: 20221027
  Serious: Yes (Death, Hospitalization)
  Sender: FDA-Public Use
  Company Number: None

PATIENT
  Age: 80 Year
  Sex: Male

DRUGS (11)
  1. PLAVIX [Suspect]
     Active Substance: CLOPIDOGREL BISULFATE
     Dosage: UNK UNK, QD
     Route: 048
     Dates: start: 20180718, end: 20180718
  2. MIRTAZAPINE [Suspect]
     Active Substance: MIRTAZAPINE
     Dosage: 15 MG, QD
     Route: 048
     Dates: start: 20180718, end: 20180718
  3. SERTRALINE HYDROCHLORIDE [Interacting]
     Active Substance: SERTRALINE HYDROCHLORIDE
     Dosage: 50 MG, 1X
     Route: 048
     Dates: start: 20180718, end: 20180718
  4. SIMVASTATIN [Suspect]
     Active Substance: SIMVASTATIN
     Dosage: 10 MG, QD
     Route: 048
     Dates: start: 20180718, end: 20180718
  5. CARBIDOPA\LEVODOPA [Suspect]
     Active Substance: CARBIDOPA\LEVODOPA
     Dosage: 1 DF, TID
     Route: 048
     Dates: start: 20180718, end: 20180718
  6. PREGABALIN [Interacting]
     Active Substance: PREGABALIN
     Dosage: 300 MG, 1X
     Route: 048
     Dates: start: 20180718, end: 20180718
  7. LORAZEPAM [Interacting]
     Active Substance: LORAZEPAM
     Dosage: 1 MG, QD
     Route: 048
     Dates: start: 20180718, end: 20180718
  8. QUETIAPINE FUMARATE [Interacting]
     Active Substance: QUETIAPINE FUMARATE
     Dosage: 100 MG, 1X
     Route: 048
     Dates: start: 20180718, end: 20180718
  9. AMLODIPINE [Suspect]
     Active Substance: AMLODIPINE BESYLATE
     Dosage: 5 MG, QD
     Route: 048
     Dates: start: 20180718, end: 20180718
  10. DUPHALAC [Suspect]
     Active Substance: LACTULOSE
     Dosage: UNK UNK, QD
     Route: 048
     Dates: start: 20180718, end: 20180718
  11. VITAMINS [Suspect]
     Active Substance: VITAMINS
     Dosage: UNK, QD
     Route: 048
     Dates: start: 20180718, end: 20180718

REACTIONS (3)
  - Hypotension [Fatal]
  - Wrong patient received product [Fatal]
  - Drug interaction [Unknown]

NARRATIVE: CASE EVENT DATE: 20180718
